FAERS Safety Report 8922841 (Version 1)
Quarter: 2012Q4

REPORT INFORMATION
  Report Type: 
  Country: US (occurrence: US)
  Receive Date: 20121123
  Receipt Date: 20121123
  Transmission Date: 20130627
  Serious: Yes (Other)
  Sender: FDA-Public Use
  Company Number: US-ROCHE-784759

PATIENT
  Sex: Female
  Weight: 74.91 kg

DRUGS (10)
  1. ACCUTANE [Suspect]
     Indication: ACNE
     Dosage: 40 mg in morning and 40 mg at night.
     Route: 065
     Dates: start: 198410, end: 198503
  2. ACCUTANE [Suspect]
     Route: 065
     Dates: start: 198508, end: 198601
  3. ACCUTANE [Suspect]
     Route: 065
     Dates: start: 198708, end: 198710
  4. AMNESTEEM [Suspect]
     Indication: ACNE
     Route: 065
  5. PROZAC [Concomitant]
  6. BENADRYL [Concomitant]
  7. CLARITIN [Concomitant]
  8. HYTONE [Concomitant]
  9. DRIXORAL [Concomitant]
  10. VALTREX [Concomitant]

REACTIONS (11)
  - Colitis ulcerative [Unknown]
  - Crohn^s disease [Unknown]
  - Inflammatory bowel disease [Unknown]
  - Stress [Unknown]
  - Depression [Unknown]
  - Mental disorder [Unknown]
  - Lip dry [Unknown]
  - Blood triglycerides increased [Unknown]
  - Hepatic enzyme increased [Unknown]
  - Irritable bowel syndrome [Unknown]
  - Anaemia [Unknown]
